FAERS Safety Report 15819449 (Version 3)
Quarter: 2023Q4

REPORT INFORMATION
  Report Type: Spontaneous
  Country: DE (occurrence: DE)
  Receive Date: 20190114
  Receipt Date: 20231019
  Transmission Date: 20240110
  Serious: Yes (Death, Disabling, Congenital Anomaly, Other)
  Sender: FDA-Public Use
  Company Number: DE-EMA-DD-20180730-144412

PATIENT
  Weight: 0.056 kg

DRUGS (26)
  1. PANTOPRAZOLE [Suspect]
     Active Substance: PANTOPRAZOLE
     Indication: Product used for unknown indication
     Dosage: 40 [MG/D]; 0-13.6 GESTATIONAL WEEK
     Route: 064
     Dates: start: 20111214, end: 20120320
  2. EZETIMIBE [Suspect]
     Active Substance: EZETIMIBE
     Indication: Product used for unknown indication
     Route: 064
  3. EZETIMIBE [Suspect]
     Active Substance: EZETIMIBE
     Dosage: FROM GESTATIONAL WEEK 0-14
     Route: 064
  4. RAMIPRIL [Suspect]
     Active Substance: RAMIPRIL
     Indication: Product used for unknown indication
     Dosage: 20 MG UNK FROM GESTATIONAL WEEK 0-113+6
     Route: 064
     Dates: start: 20111214, end: 20120320
  5. SIMVASTATIN [Suspect]
     Active Substance: SIMVASTATIN
     Indication: Product used for unknown indication
     Dosage: FROM GESTATIONAL WEEK 0-14
     Route: 064
     Dates: start: 20111214, end: 20120320
  6. RIVAROXABAN [Suspect]
     Active Substance: RIVAROXABAN
     Indication: Product used for unknown indication
     Route: 064
  7. TORSEMIDE [Suspect]
     Active Substance: TORSEMIDE
     Indication: Product used for unknown indication
     Dosage: FROM GESTATIONAL WEEK 0-14
     Route: 064
     Dates: start: 20111214, end: 20120320
  8. TACROLIMUS [Suspect]
     Active Substance: TACROLIMUS
     Indication: Product used for unknown indication
     Dosage: FROM GESTATIONAL WEEK 0-14
     Route: 064
     Dates: start: 20111214, end: 20120320
  9. ALBUTEROL [Suspect]
     Active Substance: ALBUTEROL
     Indication: Product used for unknown indication
     Dosage: FROM GESTATIONAL WEEK 0-14
     Route: 064
  10. HYDROXYCHLOROQUINE [Suspect]
     Active Substance: HYDROXYCHLOROQUINE
     Indication: Product used for unknown indication
     Dosage: FROM GESTATIONAL WEEK 0-14
     Route: 064
     Dates: start: 20111214, end: 20120320
  11. XARELTO [Suspect]
     Active Substance: RIVAROXABAN
     Indication: Product used for unknown indication
     Dosage: FROM GESTATIONAL WEEK 0-5?082(FILM COATED TABLET)
     Route: 064
  12. ALISKIREN [Suspect]
     Active Substance: ALISKIREN
     Indication: Product used for unknown indication
     Dosage: 300 [MG/D]; 0-4.6 GESTATIONAL WEEK
     Route: 064
     Dates: start: 20111214, end: 20120117
  13. DALTEPARIN SODIUM [Suspect]
     Active Substance: DALTEPARIN SODIUM
     Indication: Product used for unknown indication
     Route: 064
  14. HEPARIN [Suspect]
     Active Substance: HEPARIN SODIUM
     Indication: Product used for unknown indication
     Dosage: UNK UNK,UNK
     Route: 064
  15. NICOTINE [Suspect]
     Active Substance: NICOTINE
     Indication: Product used for unknown indication
     Dosage: FROM GESTATIONAL WEEK 0-14
     Route: 064
  16. ENOXAPARIN SODIUM [Suspect]
     Active Substance: ENOXAPARIN SODIUM
     Indication: Product used for unknown indication
     Dosage: 200 MG/D (2X100)
     Route: 064
     Dates: start: 20111214, end: 20120320
  17. RITUXIMAB [Suspect]
     Active Substance: RITUXIMAB
     Indication: Product used for unknown indication
     Dosage: LAST TIME IN DECEMBER 2011: PRE OR PERICONCEPTIONAL
     Route: 064
     Dates: end: 201112
  18. ENOXAPARIN SODIUM [Suspect]
     Active Substance: ENOXAPARIN SODIUM
     Indication: Product used for unknown indication
     Dosage: 200 MG/D (2X100)
     Route: 064
     Dates: start: 20111214, end: 20120320
  19. UNSPECIFIED INGREDIENT [Suspect]
     Active Substance: UNSPECIFIED INGREDIENT
     Indication: Product used for unknown indication
     Dosage: UNK
     Route: 064
  20. ASPIRIN [Suspect]
     Active Substance: ASPIRIN
     Indication: Product used for unknown indication
     Dosage: FROM GESTATIONAL WEEK 0-14
     Route: 064
     Dates: start: 20111214, end: 20120320
  21. METAMIZOLE [Suspect]
     Active Substance: METAMIZOLE
     Indication: Product used for unknown indication
     Dosage: FROM GESTATIONAL WEEK 0-14
     Route: 064
  22. PREDNISOLONE [Suspect]
     Active Substance: PREDNISOLONE
     Indication: Product used for unknown indication
     Dosage: FROM GESTATIONAL WEEK 0-14
     Route: 064
     Dates: start: 20111214, end: 20120320
  23. METAMIZOLE [Suspect]
     Active Substance: METAMIZOLE
     Indication: Product used for unknown indication
     Dosage: UNK; TRIMESTER: FIRST; PROBABLY ONLY IN HOSPITAL IN WEEK 5
     Route: 064
  24. CYTOTEC [Concomitant]
     Active Substance: MISOPROSTOL
     Indication: Product used for unknown indication
     Dosage: UNK; 13.6 GESTATIONAL WEEK
     Route: 064
     Dates: start: 20120320, end: 20120320
  25. CYCLOPHOSPHAMIDE [Concomitant]
     Active Substance: CYCLOPHOSPHAMIDE
     Indication: Product used for unknown indication
     Dosage: 3000 [MG CUMULATIVE]; PRECONCEPTIONAL
     Route: 064
     Dates: start: 201104, end: 201108
  26. MIFEPRISTONE [Concomitant]
     Active Substance: MIFEPRISTONE
     Indication: Product used for unknown indication
     Dosage: UNK; 13.6 GESTATIONAL WEEK
     Route: 064
     Dates: start: 20120320, end: 20120320

REACTIONS (10)
  - Truncus arteriosus persistent [Fatal]
  - Ventricular septal defect [Fatal]
  - Congenital cardiovascular anomaly [Fatal]
  - Heart disease congenital [Fatal]
  - Death [Fatal]
  - Cardiac septal defect [Fatal]
  - Foetal exposure during pregnancy [Fatal]
  - Low birth weight baby [Unknown]
  - Premature baby [Unknown]
  - Foetal exposure during pregnancy [Unknown]
